FAERS Safety Report 21667473 (Version 2)
Quarter: 2023Q1

REPORT INFORMATION
  Report Type: Report from Study
  Country: CO (occurrence: CO)
  Receive Date: 20221201
  Receipt Date: 20230102
  Transmission Date: 20230417
  Serious: Yes (Death, Hospitalization, Other)
  Sender: FDA-Public Use
  Company Number: CO-UCBSA-2022059244

PATIENT
  Age: 43 Year
  Sex: Female

DRUGS (3)
  1. CERTOLIZUMAB PEGOL [Suspect]
     Active Substance: CERTOLIZUMAB PEGOL
     Indication: Rheumatoid arthritis
     Dosage: 200 MILLIGRAM, EV 2 WEEKS(QOW)
     Route: 058
     Dates: start: 20200115, end: 20221021
  2. ALBENDAZOLE [Concomitant]
     Active Substance: ALBENDAZOLE
     Indication: Abdominal pain upper
     Dosage: 200 MILLIGRAM
     Route: 048
     Dates: start: 20221109, end: 20221122
  3. ALBENDAZOLE [Concomitant]
     Active Substance: ALBENDAZOLE
     Indication: Diarrhoea

REACTIONS (3)
  - Cardio-respiratory arrest [Fatal]
  - Bacterial infection [Not Recovered/Not Resolved]
  - Influenza [Recovering/Resolving]

NARRATIVE: CASE EVENT DATE: 20220915
